FAERS Safety Report 14454485 (Version 1)
Quarter: 2018Q1

REPORT INFORMATION
  Report Type: Spontaneous
  Country: US (occurrence: US)
  Receive Date: 20180128
  Receipt Date: 20180128
  Transmission Date: 20180509
  Serious: Yes (Congenital Anomaly)
  Sender: FDA-Public Use
  Company Number: None

PATIENT
  Age: 24 Year
  Sex: Female
  Weight: 90 kg

DRUGS (1)
  1. STELARA [Suspect]
     Active Substance: USTEKINUMAB
     Indication: PSORIASIS
     Dates: start: 20121018, end: 20171218

REACTIONS (3)
  - Pregnancy [None]
  - Maternal drugs affecting foetus [None]
  - Exposure during pregnancy [None]

NARRATIVE: CASE EVENT DATE: 20160614
